FAERS Safety Report 13362143 (Version 1)
Quarter: 2017Q1

REPORT INFORMATION
  Report Type: Spontaneous
  Country: US (occurrence: US)
  Receive Date: 20170323
  Receipt Date: 20170323
  Transmission Date: 20170429
  Serious: Yes (Other)
  Sender: FDA-Public Use
  Company Number: US-GLAXOSMITHKLINE-US2017039444

PATIENT
  Age: 51 Year
  Sex: Female

DRUGS (2)
  1. BENADRYL [Suspect]
     Active Substance: DIPHENHYDRAMINE HYDROCHLORIDE
     Indication: THROAT TIGHTNESS
     Dosage: UNK
     Dates: start: 20151224
  2. FLONASE [Suspect]
     Active Substance: FLUTICASONE PROPIONATE
     Indication: PHARYNGEAL OEDEMA
     Dosage: UNK
     Route: 045
     Dates: start: 20151224, end: 20151225

REACTIONS (8)
  - Atrial fibrillation [Recovered/Resolved]
  - Drug ineffective for unapproved indication [Unknown]
  - Off label use [Unknown]
  - Extrasystoles [Recovered/Resolved]
  - Heart rate irregular [Recovered/Resolved]
  - Pulse abnormal [Recovered/Resolved]
  - Fatigue [Unknown]
  - Mite allergy [Unknown]

NARRATIVE: CASE EVENT DATE: 20151224
